FAERS Safety Report 25948919 (Version 2)
Quarter: 2025Q4

REPORT INFORMATION
  Report Type: Spontaneous
  Country: CA (occurrence: CA)
  Receive Date: 20251022
  Receipt Date: 20251105
  Transmission Date: 20260118
  Serious: Yes (Life-Threatening, Other)
  Sender: PFIZER
  Company Number: CA-PFIZER INC-202500207626

PATIENT
  Age: 89 Year
  Sex: Female

DRUGS (9)
  1. RUXIENCE [Suspect]
     Active Substance: RITUXIMAB-PVVR
     Indication: Granulomatosis with polyangiitis
     Dosage: 700 MG, WEEKLY, FOR 4 WEEKS
     Route: 042
     Dates: start: 20211021, end: 20211112
  2. RUXIENCE [Suspect]
     Active Substance: RITUXIMAB-PVVR
     Dosage: 700 MG, WEEKLY, FOR 4 WEEKS
     Route: 042
     Dates: start: 20220518, end: 20220609
  3. RUXIENCE [Suspect]
     Active Substance: RITUXIMAB-PVVR
     Dosage: 700 MG, WEEKLY, FOR 4 WEEKS
     Route: 042
     Dates: start: 20230110, end: 20230131
  4. RUXIENCE [Suspect]
     Active Substance: RITUXIMAB-PVVR
     Dosage: 700 MG, WEEKLY, FOR 4 WEEKS
     Route: 042
     Dates: start: 20230802, end: 20230823
  5. RUXIENCE [Suspect]
     Active Substance: RITUXIMAB-PVVR
     Dosage: 700 MG, WEEKLY, FOR 4 WEEKS
     Route: 042
     Dates: start: 20240228, end: 20240320
  6. RUXIENCE [Suspect]
     Active Substance: RITUXIMAB-PVVR
     Dosage: 700 MG, WEEKLY, FOR 4 WEEKS
     Route: 042
     Dates: start: 20240925, end: 20241024
  7. RUXIENCE [Suspect]
     Active Substance: RITUXIMAB-PVVR
     Dosage: 500 MG, EVERY 6 MONTHS
     Route: 042
     Dates: start: 20250528, end: 20250528
  8. ALENDRONATE SODIUM [Concomitant]
     Active Substance: ALENDRONATE SODIUM
     Dosage: 70 MG
     Dates: end: 202510
  9. OZEMPIC [Concomitant]
     Active Substance: SEMAGLUTIDE
     Dosage: UNK

REACTIONS (3)
  - Interstitial lung disease [Unknown]
  - Disease progression [Unknown]
  - Blood pressure increased [Unknown]

NARRATIVE: CASE EVENT DATE: 20250101
